FAERS Safety Report 5982120-3 (Version None)
Quarter: 2008Q4

REPORT INFORMATION
  Report Type: 
  Country: None (occurrence: None)
  Receive Date: 20081202
  Receipt Date: 20081126
  Transmission Date: 20090506
  Serious: Yes (Death, Hospitalization)
  Sender: FDA-Public Use
  Company Number: 2008SP019259

PATIENT
  Age: 46 Year
  Sex: Female

DRUGS (4)
  1. TEMODAL [Suspect]
     Indication: GLIOBLASTOMA
     Dosage: 125 MG;QD;PO
     Route: 048
     Dates: start: 20080601, end: 20080905
  2. CORTICOSTEROID NOS (CORTICOSTEROID NOS) [Suspect]
     Indication: BRAIN NEOPLASM
  3. LAMICTAL [Suspect]
     Indication: DRUG USE FOR UNKNOWN INDICATION
     Dosage: 100 MG;QD;PO
     Route: 048
     Dates: start: 20080501, end: 20080910
  4. KEPPRA [Suspect]
     Indication: DRUG USE FOR UNKNOWN INDICATION
     Dosage: 100 MG;QD;PO
     Route: 048
     Dates: start: 20080501, end: 20080915

REACTIONS (9)
  - ANAEMIA [None]
  - DEEP VEIN THROMBOSIS [None]
  - DIABETIC KETOACIDOSIS [None]
  - HAEMATOTOXICITY [None]
  - INTRACRANIAL PRESSURE INCREASED [None]
  - LUNG DISORDER [None]
  - MULTI-ORGAN FAILURE [None]
  - NEUTROPENIA [None]
  - THROMBOCYTOPENIA [None]
